FAERS Safety Report 9212848 (Version 1)
Quarter: 2013Q1

REPORT INFORMATION
  Report Type: Spontaneous
  Country: US (occurrence: None)
  Receive Date: 20120824
  Receipt Date: 20120824
  Transmission Date: 20140127
  Serious: Yes (Hospitalization)
  Sender: FDA-Public Use
  Company Number: A-US2011-51381

PATIENT
  Age: 35 Year
  Sex: Female

DRUGS (3)
  1. VELETRI [Suspect]
     Route: 042
     Dates: start: 201107
  2. LETAIRIS (AMBRISENTAN) [Concomitant]
  3. ADCIRCA (TADALAFIL) [Concomitant]

REACTIONS (8)
  - Device occlusion [None]
  - Fatigue [None]
  - Dyspnoea [None]
  - Device leakage [None]
  - Malaise [None]
  - Dizziness [None]
  - Blood pressure decreased [None]
  - Medical device complication [None]
